FAERS Safety Report 6762023-7 (Version None)
Quarter: 2010Q2

REPORT INFORMATION
  Report Type: 
  Country: None (occurrence: None)
  Receive Date: 20100609
  Receipt Date: 20100531
  Transmission Date: 20101027
  Serious: Yes (Hospitalization, Other)
  Sender: FDA-Public Use
  Company Number: CA-JNJFOC-20100601450

PATIENT
  Age: 28 Year
  Sex: Male
  Weight: 83.8 kg

DRUGS (3)
  1. REMICADE [Suspect]
     Indication: ANKYLOSING SPONDYLITIS
     Route: 042
  2. VOLTAREN [Concomitant]
     Indication: ANKYLOSING SPONDYLITIS
     Route: 061
  3. PREDNISOLONE [Concomitant]
     Indication: UVEITIS

REACTIONS (2)
  - CELLULITIS [None]
  - DIARRHOEA [None]
